FAERS Safety Report 9212994 (Version 1)
Quarter: 2013Q2

REPORT INFORMATION
  Report Type: Spontaneous
  Country: US (occurrence: US)
  Receive Date: 20130405
  Receipt Date: 20130405
  Transmission Date: 20140414
  Serious: No
  Sender: FDA-Public Use
  Company Number: US-009507513-1304USA000622

PATIENT
  Sex: Male

DRUGS (3)
  1. SAPHRIS [Suspect]
     Indication: BIPOLAR I DISORDER
     Dosage: 5 MG, UNK
     Route: 060
     Dates: start: 20130313, end: 20130322
  2. SAPHRIS [Suspect]
     Dosage: 10 MG, UNK
     Route: 060
     Dates: start: 20130323, end: 20130326
  3. SAPHRIS [Suspect]
     Dosage: 5 MG, UNK
     Route: 060
     Dates: start: 20130327

REACTIONS (2)
  - Anxiety disorder [Unknown]
  - Akathisia [Unknown]
